FAERS Safety Report 10419659 (Version 1)
Quarter: 2014Q2

REPORT INFORMATION
  Report Type: Spontaneous
  Country: US (occurrence: None)
  Receive Date: 20140625
  Receipt Date: 20140625
  Transmission Date: 20141212
  Serious: No
  Sender: FDA-Public Use
  Company Number: A-NJ2014-94254

PATIENT
  Age: 74 Year
  Sex: Female

DRUGS (1)
  1. OPSUMIT (MACITENTAN) [Suspect]
     Indication: PULMONARY HYPERTENSION
     Route: 048
     Dates: start: 20131231

REACTIONS (1)
  - Drug intolerance [None]
